FAERS Safety Report 8393882 (Version 2)
Quarter: 2012Q4

REPORT INFORMATION
  Report Type: Report from Study
  Country: JP (occurrence: JP)
  Receive Date: 20120207
  Receipt Date: 20121008
  Transmission Date: 20130627
  Serious: Yes (Hospitalization, Other)
  Sender: FDA-Public Use
  Company Number: JP-ROCHE-1014109

PATIENT
  Age: 50 None
  Sex: Male

DRUGS (26)
  1. ROACTEMRA [Suspect]
     Indication: RHEUMATOID ARTHRITIS
     Route: 041
     Dates: start: 20090417, end: 20090417
  2. ROACTEMRA [Suspect]
     Indication: RHEUMATOID ARTHRITIS
     Route: 041
     Dates: start: 20090515, end: 20090515
  3. ROACTEMRA [Suspect]
     Indication: RHEUMATOID ARTHRITIS
     Route: 041
     Dates: start: 20090612, end: 20090612
  4. ROACTEMRA [Suspect]
     Indication: RHEUMATOID ARTHRITIS
     Route: 041
     Dates: start: 20090710, end: 20090710
  5. ROACTEMRA [Suspect]
     Indication: RHEUMATOID ARTHRITIS
     Route: 041
     Dates: start: 20090807, end: 20090807
  6. ROACTEMRA [Suspect]
     Indication: RHEUMATOID ARTHRITIS
     Route: 041
     Dates: start: 20090911, end: 20090911
  7. ROACTEMRA [Suspect]
     Indication: RHEUMATOID ARTHRITIS
     Route: 041
     Dates: start: 20091007, end: 20091007
  8. ROACTEMRA [Suspect]
     Indication: RHEUMATOID ARTHRITIS
     Route: 041
     Dates: start: 20100409, end: 20100409
  9. ROACTEMRA [Suspect]
     Indication: RHEUMATOID ARTHRITIS
     Dosage: Dosage is uncertain.
     Route: 041
     Dates: start: 20100507, end: 20100702
  10. ROACTEMRA [Suspect]
     Indication: RHEUMATOID ARTHRITIS
     Route: 041
     Dates: start: 20100507, end: 20100507
  11. ROACTEMRA [Suspect]
     Indication: RHEUMATOID ARTHRITIS
     Route: 041
     Dates: start: 20100604, end: 20100604
  12. ROACTEMRA [Suspect]
     Indication: RHEUMATOID ARTHRITIS
     Route: 041
     Dates: start: 20100702, end: 20100702
  13. PREDONINE [Suspect]
     Indication: RHEUMATOID ARTHRITIS
     Route: 048
     Dates: end: 20090806
  14. PREDONINE [Suspect]
     Indication: RHEUMATOID ARTHRITIS
     Route: 048
     Dates: start: 20090807
  15. PREDONINE [Suspect]
     Indication: RHEUMATOID ARTHRITIS
     Route: 048
  16. PROGRAF [Concomitant]
     Indication: RHEUMATOID ARTHRITIS
     Route: 048
     Dates: end: 20090709
  17. PROGRAF [Concomitant]
     Indication: RHEUMATOID ARTHRITIS
     Route: 048
     Dates: start: 20090710, end: 20090806
  18. PROGRAF [Concomitant]
     Indication: RHEUMATOID ARTHRITIS
     Route: 048
     Dates: start: 20090807, end: 20091105
  19. BENET [Concomitant]
     Indication: OSTEOPOROSIS
     Route: 048
  20. GASTER [Concomitant]
     Indication: PROPHYLAXIS
     Route: 048
  21. NABOAL [Concomitant]
     Indication: RHEUMATOID ARTHRITIS
     Route: 048
  22. NABOAL [Concomitant]
     Indication: RHEUMATOID ARTHRITIS
     Route: 048
  23. GLORIAMIN [Concomitant]
     Indication: PROPHYLAXIS
     Route: 048
  24. LOXONIN [Concomitant]
     Indication: RHEUMATOID ARTHRITIS
     Route: 048
  25. MUCOSTA [Concomitant]
     Indication: PROPHYLAXIS
     Route: 048
  26. GASTER [Concomitant]
     Indication: PROPHYLAXIS
     Route: 048

REACTIONS (5)
  - Atypical mycobacterial infection [Recovering/Resolving]
  - Pneumonia pseudomonas aeruginosa [Recovering/Resolving]
  - Interstitial lung disease [Recovering/Resolving]
  - Pneumonia bacterial [Recovering/Resolving]
  - Sepsis [Unknown]
